FAERS Safety Report 14950230 (Version 1)
Quarter: 2018Q2

REPORT INFORMATION
  Report Type: Spontaneous
  Country: US (occurrence: US)
  Receive Date: 20180530
  Receipt Date: 20180530
  Transmission Date: 20180711
  Serious: No
  Sender: FDA-Public Use
  Company Number: US-BIOGEN-2018BI00584256

PATIENT
  Sex: Female

DRUGS (1)
  1. TECFIDERA [Suspect]
     Active Substance: DIMETHYL FUMARATE
     Indication: MULTIPLE SCLEROSIS
     Route: 048
     Dates: start: 20180503, end: 20180521

REACTIONS (4)
  - Diarrhoea [Recovered/Resolved]
  - Night sweats [Recovered/Resolved]
  - Drug intolerance [Unknown]
  - Vomiting [Recovered/Resolved]
